FAERS Safety Report 6242871-2 (Version None)
Quarter: 2009Q2

REPORT INFORMATION
  Report Type: 
  Country: None (occurrence: None)
  Receive Date: 20090624
  Receipt Date: 20090619
  Transmission Date: 20091009
  Serious: Yes (Hospitalization)
  Sender: FDA-Public Use
  Company Number: D0061900A

PATIENT
  Sex: Male

DRUGS (2)
  1. AUGMENTIN [Suspect]
     Route: 048
     Dates: start: 20090513, end: 20090513
  2. IBUPROFEN [Concomitant]
     Route: 048
     Dates: start: 20090513, end: 20090513

REACTIONS (7)
  - ANAPHYLACTIC SHOCK [None]
  - DYSPNOEA [None]
  - FACE OEDEMA [None]
  - HYPERSENSITIVITY [None]
  - PYREXIA [None]
  - SWELLING FACE [None]
  - TONSILLITIS [None]
